FAERS Safety Report 6918138-3 (Version None)
Quarter: 2010Q3

REPORT INFORMATION
  Report Type: 
  Country: None (occurrence: None)
  Receive Date: 20100806
  Receipt Date: 20100730
  Transmission Date: 20110219
  Serious: No
  Sender: FDA-Public Use
  Company Number: AX209-10-0403

PATIENT
  Age: 79 Year
  Sex: Male
  Weight: 84.1 kg

DRUGS (12)
  1. ABRAXANE [Suspect]
     Indication: TRANSITIONAL CELL CARCINOMA
     Dosage: 533 MG
     Dates: start: 20100609
  2. GEMCITABINE [Suspect]
     Indication: TRANSITIONAL CELL CARCINOMA
     Dosage: 1640 MG
     Dates: start: 20100609
  3. CARBOPLATIN [Suspect]
     Indication: TRANSITIONAL CELL CARCINOMA
     Dosage: 492 MG
     Dates: start: 20100609
  4. ACETAMINOPHEN [Concomitant]
  5. COLACE (DOCUSATE SODIUM) [Concomitant]
  6. METOPROLOL TARTRATE [Concomitant]
  7. PROCHLOPERAZINE MALEATE (PROCHLORPERAZINE MALEATE) [Concomitant]
  8. SIMVASTATIN [Concomitant]
  9. SATALOL [Concomitant]
  10. WARFARIN SODIUM [Concomitant]
  11. CIPROFLOXACIN [Concomitant]
  12. LOVENOX [Concomitant]

REACTIONS (9)
  - HAEMARTHROSIS [None]
  - HAEMOGLOBIN DECREASED [None]
  - HYPONATRAEMIA [None]
  - HYPOTENSION [None]
  - JOINT EFFUSION [None]
  - NEUTROPHIL COUNT DECREASED [None]
  - PLATELET COUNT DECREASED [None]
  - RED BLOOD CELL SEDIMENTATION RATE INCREASED [None]
  - WHITE BLOOD CELL COUNT DECREASED [None]
